FAERS Safety Report 9988731 (Version 2)
Quarter: 2013Q4

REPORT INFORMATION
  Report Type: Spontaneous
  Country: US (occurrence: None)
  Receive Date: 20131004
  Receipt Date: 20131122
  Transmission Date: 20140711
  Serious: Yes (Other)
  Sender: FDA-Public Use
  Company Number: ADR-2013-01735

PATIENT
  Age: 41 Year
  Sex: Male

DRUGS (1)
  1. LIORESAL INTRATHECAL (BACLOFEN INJECTION)2000 MCG/ML [Suspect]
     Indication: MUSCLE SPASTICITY
     Dates: start: 20130905

REACTIONS (6)
  - Underdose [None]
  - Drug withdrawal syndrome [None]
  - Agitation [None]
  - Hyperhidrosis [None]
  - Hyperreflexia [None]
  - Device issue [None]
